FAERS Safety Report 9133201 (Version 1)
Quarter: 2013Q1

REPORT INFORMATION
  Report Type: Spontaneous
  Country: US (occurrence: US)
  Receive Date: 20130301
  Receipt Date: 20130301
  Transmission Date: 20140127
  Serious: Yes (Death, Hospitalization, Other)
  Sender: FDA-Public Use
  Company Number: US-BAXTER-2013BAX006455

PATIENT
  Age: 46 None
  Sex: Female

DRUGS (1)
  1. DIANEAL LOW CALCIUM [Suspect]
     Indication: PERITONEAL DIALYSIS
     Route: 033

REACTIONS (8)
  - Multi-organ failure [Fatal]
  - Heart rate decreased [Unknown]
  - Pulmonary oedema [Unknown]
  - Anuria [Unknown]
  - Multimorbidity [Unknown]
  - Malaise [Unknown]
  - Fluid retention [Unknown]
  - Peritonitis [Unknown]
